FAERS Safety Report 20679105 (Version 1)
Quarter: 2022Q2

REPORT INFORMATION
  Report Type: Report from Study
  Country: BR (occurrence: BR)
  Receive Date: 20220406
  Receipt Date: 20220406
  Transmission Date: 20220721
  Serious: Yes (Other)
  Sender: FDA-Public Use
  Company Number: BR-NOVARTISPH-NVSC2021BR302584

PATIENT
  Age: 39 Year
  Sex: Female

DRUGS (13)
  1. PIQRAY [Suspect]
     Active Substance: ALPELISIB
     Indication: Breast cancer metastatic
     Dosage: 300 MG, QD
     Route: 065
  2. PIQRAY [Suspect]
     Active Substance: ALPELISIB
     Indication: Metastases to bone
     Dosage: UNK
     Route: 065
  3. PIQRAY [Suspect]
     Active Substance: ALPELISIB
     Indication: Breast cancer
     Dosage: 300 MG, QD
     Route: 048
     Dates: start: 20211001
  4. PIQRAY [Suspect]
     Active Substance: ALPELISIB
     Dosage: UNK
     Route: 065
     Dates: start: 20211001
  5. FEMARA [Suspect]
     Active Substance: LETROZOLE
     Indication: Metastases to bone
     Dosage: 2.5 MG, QD
     Route: 065
  6. FEMARA [Suspect]
     Active Substance: LETROZOLE
     Indication: Breast cancer metastatic
     Dosage: 2.5 UNK
     Route: 048
  7. KISQALI [Suspect]
     Active Substance: RIBOCICLIB
     Indication: Product used for unknown indication
     Dosage: UNK
     Route: 065
  8. GLUCERNA [Concomitant]
     Active Substance: AMINO ACIDS\DEXTROSE\ELECTROLYTES NOS\SOYBEAN OIL\VITAMINS
     Indication: Diabetes mellitus
     Dosage: UNK (BEFORE PIQRAY)
     Route: 065
  9. GLUCERNA [Concomitant]
     Active Substance: AMINO ACIDS\DEXTROSE\ELECTROLYTES NOS\SOYBEAN OIL\VITAMINS
     Indication: Weight decreased
  10. TRULICITY [Concomitant]
     Active Substance: DULAGLUTIDE
     Indication: Weight decreased
     Dosage: 1.5 MG, QW (IN MAY)
     Route: 058
  11. BIOMAG [Concomitant]
     Indication: Weight decreased
     Dosage: 15 MG, QD (IN MAY)
     Route: 048
  12. CETIRIZINE HYDROCHLORIDE [Concomitant]
     Active Substance: CETIRIZINE HYDROCHLORIDE
     Indication: Drug hypersensitivity
     Dosage: 10 MG, QD
     Route: 048
  13. VITAMIN D3 [Concomitant]
     Active Substance: CHOLECALCIFEROL
     Indication: Hypovitaminosis
     Dosage: 7 MILLI-INTERNATIONAL UNIT, QW
     Route: 048

REACTIONS (59)
  - Dizziness [Recovered/Resolved]
  - Dizziness [Recovered/Resolved]
  - Dizziness [Recovered/Resolved]
  - Diabetic metabolic decompensation [Unknown]
  - Diarrhoea [Unknown]
  - Hyperglycaemia [Not Recovered/Not Resolved]
  - Nausea [Recovered/Resolved]
  - Nausea [Recovered/Resolved]
  - Nausea [Recovered/Resolved]
  - Blood glucose increased [Recovering/Resolving]
  - Syncope [Unknown]
  - Pollakiuria [Not Recovered/Not Resolved]
  - Taste disorder [Not Recovered/Not Resolved]
  - Thirst [Not Recovered/Not Resolved]
  - Eye pain [Unknown]
  - Insulin resistance [Unknown]
  - Ocular discomfort [Unknown]
  - Aptyalism [Unknown]
  - Eye irritation [Unknown]
  - Taste disorder [Unknown]
  - Dry throat [Unknown]
  - Oropharyngeal discomfort [Unknown]
  - Memory impairment [Recovering/Resolving]
  - Facial discomfort [Recovered/Resolved]
  - Facial discomfort [Recovered/Resolved]
  - Facial discomfort [Recovered/Resolved]
  - Wound [Recovering/Resolving]
  - Parosmia [Recovering/Resolving]
  - Adverse drug reaction [Unknown]
  - Feeling abnormal [Recovering/Resolving]
  - Gingival disorder [Unknown]
  - Decreased appetite [Recovered/Resolved]
  - Stomatitis [Not Recovered/Not Resolved]
  - Dry mouth [Unknown]
  - Decreased appetite [Unknown]
  - Fatigue [Unknown]
  - Asthenia [Recovering/Resolving]
  - Blood glucose abnormal [Unknown]
  - Rash [Recovered/Resolved]
  - Vomiting [Unknown]
  - Insomnia [Recovered/Resolved]
  - Ageusia [Recovered/Resolved]
  - Aphthous ulcer [Unknown]
  - Decreased appetite [Recovered/Resolved]
  - Dysgeusia [Recovered/Resolved]
  - Dysgeusia [Not Recovered/Not Resolved]
  - Skin discolouration [Unknown]
  - Dandruff [Unknown]
  - Malaise [Unknown]
  - Dizziness [Unknown]
  - Illness [Unknown]
  - Eye disorder [Unknown]
  - Taste disorder [Recovering/Resolving]
  - Vision blurred [Unknown]
  - Dry skin [Unknown]
  - Headache [Unknown]
  - Alopecia [Unknown]
  - Insomnia [Unknown]
  - Blood glucose decreased [Unknown]

NARRATIVE: CASE EVENT DATE: 20211001
